FAERS Safety Report 9920018 (Version 1)
Quarter: 2014Q1

REPORT INFORMATION
  Report Type: Spontaneous
  Country: NL (occurrence: NL)
  Receive Date: 20140224
  Receipt Date: 20140224
  Transmission Date: 20141002
  Serious: Yes (Death, Other)
  Sender: FDA-Public Use
  Company Number: NL-BRISTOL-MYERS SQUIBB COMPANY-20229803

PATIENT
  Age: 77 Year
  Sex: Male
  Weight: 79 kg

DRUGS (8)
  1. ETOPOSIDE [Suspect]
     Indication: ENTEROPATHY-ASSOCIATED T-CELL LYMPHOMA
     Dosage: ETOPOSIDE INFOPL CONC 20MG/ML
     Dates: start: 20131126, end: 20131130
  2. IFOSFAMIDE [Suspect]
     Indication: ENTEROPATHY-ASSOCIATED T-CELL LYMPHOMA
     Dosage: IFOSFOMIDE INJECTION POWDER 1 G
     Dates: start: 20131126, end: 20131130
  3. METHOTREXATE [Suspect]
     Indication: ENTEROPATHY-ASSOCIATED T-CELL LYMPHOMA
     Dosage: METHOTREXATE INFUSION FLUID CONCENTRATE 100MG/ML
     Dates: start: 20131126, end: 20131130
  4. PIPERACILLIN + TAZOBACTAM [Suspect]
     Dosage: PIPERACILLIN/TAZOBACTAM INJECTION POWDER 200/250MG
  5. FUNGIZONE [Concomitant]
     Dosage: FUNGIZONE (AMPHOTERICIN B, 100MG/ML SUSPENSION)
  6. CIPROXIN [Concomitant]
     Dosage: CIPROXIN (CIPROFLOXACIN, 50MG/ML SUSPENSION)
  7. PANTOZOL [Concomitant]
     Dosage: PANTOZOL (PANTOPRAZOLE, 20MG TABLET),
  8. VALACICLOVIR [Concomitant]
     Dosage: TAB

REACTIONS (2)
  - Hepatic failure [Fatal]
  - Neurotoxicity [Recovered/Resolved]
